FAERS Safety Report 15518551 (Version 5)
Quarter: 2019Q2

REPORT INFORMATION
  Report Type: Report from Study
  Country: US (occurrence: US)
  Receive Date: 20181017
  Receipt Date: 20190507
  Transmission Date: 20190711
  Serious: Yes (Death, Hospitalization)
  Sender: FDA-Public Use
  Company Number: US-ACTELION-A-US2018-179679

PATIENT
  Age: 71 Year
  Sex: Male
  Weight: 62.59 kg

DRUGS (6)
  1. UPTRAVI [Suspect]
     Active Substance: SELEXIPAG
     Indication: PULMONARY ARTERIAL HYPERTENSION
     Dosage: 1600 MCG, QD
     Route: 048
  2. AZITHROMYCIN ANHYDROUS. [Suspect]
     Active Substance: AZITHROMYCIN ANHYDROUS
     Indication: PRODUCT USED FOR UNKNOWN INDICATION
     Route: 065
  3. UPTRAVI [Suspect]
     Active Substance: SELEXIPAG
     Dosage: 800 MCG, BID
     Route: 048
  4. UPTRAVI [Suspect]
     Active Substance: SELEXIPAG
     Dosage: 600 MCG, BID
     Route: 048
  5. UPTRAVI [Suspect]
     Active Substance: SELEXIPAG
     Dosage: 1000 MCG, BID
     Route: 048
  6. AUGMENTIN [Suspect]
     Active Substance: AMOXICILLIN\CLAVULANATE POTASSIUM
     Indication: PRODUCT USED FOR UNKNOWN INDICATION
     Route: 065

REACTIONS (15)
  - Drug hypersensitivity [Unknown]
  - Swelling [Unknown]
  - Dyspnoea exertional [Unknown]
  - Pneumonia [Unknown]
  - Joint swelling [Unknown]
  - Oxygen saturation decreased [Unknown]
  - Mucous stools [Unknown]
  - Incorrect dose administered [Unknown]
  - Pain in jaw [Unknown]
  - Dyspnoea [Unknown]
  - Death [Fatal]
  - Abnormal faeces [Unknown]
  - Hospitalisation [Unknown]
  - Secretion discharge [Unknown]
  - Fatigue [Unknown]

NARRATIVE: CASE EVENT DATE: 20190314
